FAERS Safety Report 8549310-7 (Version None)
Quarter: 2012Q3

REPORT INFORMATION
  Report Type: 
  Country: None (occurrence: None)
  Receive Date: 20120730
  Receipt Date: 20120719
  Transmission Date: 20120928
  Serious: Yes (Hospitalization)
  Sender: FDA-Public Use
  Company Number: US-VERTEX PHARMACEUTICALS INC.-AE-2012-010931

PATIENT
  Sex: Male

DRUGS (4)
  1. PROCRIT [Concomitant]
     Indication: HEPATITIS C
     Dates: start: 20120529
  2. PEGASYS [Concomitant]
     Indication: HEPATITIS C
     Dates: start: 20120405
  3. INCIVEK [Suspect]
     Indication: HEPATITIS C
     Route: 048
     Dates: start: 20120405, end: 20120701
  4. RIBAVIRIN [Concomitant]
     Indication: HEPATITIS C
     Dates: start: 20120405

REACTIONS (5)
  - BALANCE DISORDER [None]
  - GINGIVAL BLEEDING [None]
  - CONFUSIONAL STATE [None]
  - JAUNDICE [None]
  - FATIGUE [None]
